FAERS Safety Report 9410167 (Version 1)
Quarter: 2013Q3

REPORT INFORMATION
  Report Type: Spontaneous
  Country: US (occurrence: US)
  Receive Date: 20130719
  Receipt Date: 20130719
  Transmission Date: 20140515
  Serious: No
  Sender: FDA-Public Use
  Company Number: US-BAYER-2013-087865

PATIENT
  Age: 22 Year
  Sex: Female
  Weight: 74.83 kg

DRUGS (3)
  1. ALEVE CAPLET [Suspect]
     Indication: ANALGESIC THERAPY
     Dosage: UNK
     Route: 048
  2. ALEVE CAPLET [Suspect]
     Indication: ANALGESIC THERAPY
     Dosage: DAILY DOSE 5 DF
     Dates: start: 20130713, end: 20130713
  3. PERCOCET [Concomitant]

REACTIONS (1)
  - Extra dose administered [None]
